FAERS Safety Report 6940841-X (Version None)
Quarter: 2010Q3

REPORT INFORMATION
  Report Type: 
  Country: None (occurrence: None)
  Receive Date: 20100825
  Receipt Date: 20100816
  Transmission Date: 20110219
  Serious: Yes (Hospitalization)
  Sender: FDA-Public Use
  Company Number: GXKR2010IT09170

PATIENT
  Age: 30 Month
  Sex: Female

DRUGS (1)
  1. METHADONE (NGX) [Suspect]
     Dosage: 20 MG, UNK
     Route: 048

REACTIONS (12)
  - ACCIDENTAL EXPOSURE [None]
  - ACCIDENTAL OVERDOSE [None]
  - ATAXIA [None]
  - BALANCE DISORDER [None]
  - DYSARTHRIA [None]
  - DYSTONIA [None]
  - ENCEPHALOPATHY [None]
  - FEBRILE CONVULSION [None]
  - GAIT DISTURBANCE [None]
  - HYPOTONIA [None]
  - PSYCHOMOTOR HYPERACTIVITY [None]
  - UNRESPONSIVE TO STIMULI [None]
